FAERS Safety Report 6178391-3 (Version None)
Quarter: 2009Q2

REPORT INFORMATION
  Report Type: 
  Country: None (occurrence: None)
  Receive Date: 20090504
  Receipt Date: 20090430
  Transmission Date: 20091009
  Serious: Yes (Other)
  Sender: FDA-Public Use
  Company Number: GB-ABBOTT-09P-167-0570954-00

PATIENT
  Age: 54 Year
  Sex: Female
  Weight: 87 kg

DRUGS (6)
  1. HUMIRA [Suspect]
     Indication: RHEUMATOID ARTHRITIS
  2. SULFASALAZINE [Concomitant]
     Indication: RHEUMATOID ARTHRITIS
  3. NAPROXEN [Concomitant]
     Indication: RHEUMATOID ARTHRITIS
  4. LANSOPRAZOLE [Concomitant]
     Indication: GASTRIC PH DECREASED
  5. BISOPROLOL FUMARATE [Concomitant]
     Indication: PALPITATIONS
  6. ACETAMINOPHEN W/ CODEINE [Concomitant]
     Indication: RHEUMATOID ARTHRITIS
     Dosage: PRN

REACTIONS (2)
  - MALAISE [None]
  - PHARYNGEAL HAEMORRHAGE [None]
